FAERS Safety Report 9996278 (Version 1)
Quarter: 2014Q1

REPORT INFORMATION
  Report Type: Spontaneous
  Country: US (occurrence: US)
  Receive Date: 20140311
  Receipt Date: 20140311
  Transmission Date: 20141002
  Serious: Yes (Other)
  Sender: FDA-Public Use
  Company Number: US-ACTAVISPR-2014-03984

PATIENT
  Age: 42 Year
  Sex: Male

DRUGS (2)
  1. QUETIAPINE (AGPTC) [Suspect]
     Indication: SCHIZOPHRENIA
     Dosage: 400 MG, QPM, ONE DOSE
     Route: 048
  2. QUETIAPINE (AGPTC) [Suspect]
     Indication: DELIRIUM

REACTIONS (1)
  - Electrocardiogram QT prolonged [Recovered/Resolved]
